FAERS Safety Report 13194276 (Version 1)
Quarter: 2017Q1

REPORT INFORMATION
  Report Type: Spontaneous
  Country: US (occurrence: US)
  Receive Date: 20170207
  Receipt Date: 20170207
  Transmission Date: 20170428
  Serious: No
  Sender: FDA-Public Use
  Company Number: US-JAZZ-2016-US-022894

PATIENT
  Sex: Male

DRUGS (12)
  1. METHOTREXATE. [Concomitant]
     Active Substance: METHOTREXATE
  2. GUAIFENESIN. [Concomitant]
     Active Substance: GUAIFENESIN
  3. FOLIC ACID. [Concomitant]
     Active Substance: FOLIC ACID
  4. VENLAFAXINE HCL [Concomitant]
     Active Substance: VENLAFAXINE HYDROCHLORIDE
  5. XYREM [Suspect]
     Active Substance: SODIUM OXYBATE
     Indication: PRODUCT USED FOR UNKNOWN INDICATION
     Dosage: 2.25 G, BID
     Route: 048
     Dates: start: 200502, end: 2016
  6. GABAPENTIN. [Concomitant]
     Active Substance: GABAPENTIN
  7. ALEVE [Concomitant]
     Active Substance: NAPROXEN SODIUM
  8. MODAFINIL. [Concomitant]
     Active Substance: MODAFINIL
  9. ASPIRIN                            /00002701/ [Concomitant]
     Active Substance: ASPIRIN
  10. ENBREL [Concomitant]
     Active Substance: ETANERCEPT
  11. ATORVASTATIN [Concomitant]
     Active Substance: ATORVASTATIN
  12. ADDERALL [Concomitant]
     Active Substance: AMPHETAMINE ASPARTATE\AMPHETAMINE SULFATE\DEXTROAMPHETAMINE SACCHARATE\DEXTROAMPHETAMINE SULFATE

REACTIONS (1)
  - Lung disorder [Unknown]
